FAERS Safety Report 21600054 (Version 5)
Quarter: 2023Q1

REPORT INFORMATION
  Report Type: Spontaneous
  Country: CA (occurrence: CA)
  Receive Date: 20221116
  Receipt Date: 20230328
  Transmission Date: 20230417
  Serious: Yes (Death, Hospitalization, Other)
  Sender: FDA-Public Use
  Company Number: CA-CELLTRION INC.-2018CA024834

PATIENT

DRUGS (64)
  1. INFLECTRA [Suspect]
     Active Substance: INFLIXIMAB-DYYB
     Indication: Crohn^s disease
     Dosage: 5 MG/KG, 0, 2, 6, THEN EVERY 8 WEEKS/Q 0 WEEK DOSE
     Route: 042
     Dates: start: 20180830, end: 20180830
  2. INFLECTRA [Suspect]
     Active Substance: INFLIXIMAB-DYYB
     Dosage: 5 MG/KG, 0, 2, 6, THEN EVERY 8 WEEKS/Q 2 WEEK DOSE
     Route: 042
     Dates: start: 20180913, end: 20180913
  3. INFLECTRA [Suspect]
     Active Substance: INFLIXIMAB-DYYB
     Dosage: 5 MG/KG, 0, 2, 6, THEN EVERY 8 WEEKS/Q 6 WEEK DOSE
     Route: 042
     Dates: start: 20181009, end: 20181009
  4. INFLECTRA [Suspect]
     Active Substance: INFLIXIMAB-DYYB
     Dosage: 5 MG/KG, 0, 2, 6, THEN EVERY 8 WEEKS
     Route: 042
     Dates: start: 20181204, end: 20200708
  5. INFLECTRA [Suspect]
     Active Substance: INFLIXIMAB-DYYB
     Dosage: 200 MG
     Route: 042
  6. INFLECTRA [Suspect]
     Active Substance: INFLIXIMAB-DYYB
     Dosage: 5 MG/KG, 0, 2, 6, THEN EVERY 8 WEEKS
     Route: 042
     Dates: start: 20190129
  7. INFLECTRA [Suspect]
     Active Substance: INFLIXIMAB-DYYB
     Dosage: 5 MG/KG, 0, 2, 6, THEN EVERY 8 WEEKS
     Route: 042
     Dates: start: 20190129
  8. INFLECTRA [Suspect]
     Active Substance: INFLIXIMAB-DYYB
     Dosage: 200 MG
     Route: 042
     Dates: start: 20190326
  9. INFLECTRA [Suspect]
     Active Substance: INFLIXIMAB-DYYB
     Dosage: 200 MG
     Route: 042
     Dates: start: 20190516
  10. INFLECTRA [Suspect]
     Active Substance: INFLIXIMAB-DYYB
     Dosage: 200 MG
     Route: 042
     Dates: start: 20190716
  11. INFLECTRA [Suspect]
     Active Substance: INFLIXIMAB-DYYB
     Dosage: 200 MG
     Route: 042
     Dates: start: 20190716
  12. INFLECTRA [Suspect]
     Active Substance: INFLIXIMAB-DYYB
     Dosage: 200 MG
     Route: 042
     Dates: start: 20190910
  13. INFLECTRA [Suspect]
     Active Substance: INFLIXIMAB-DYYB
     Dosage: 200 MG
     Route: 042
     Dates: start: 20191105
  14. INFLECTRA [Suspect]
     Active Substance: INFLIXIMAB-DYYB
     Dosage: 200 MG
     Route: 042
     Dates: start: 20200115
  15. INFLECTRA [Suspect]
     Active Substance: INFLIXIMAB-DYYB
     Dosage: 5 MG/KG, 0, 2, 6, THEN EVERY 8 WEEKS
     Route: 042
     Dates: start: 20200312
  16. INFLECTRA [Suspect]
     Active Substance: INFLIXIMAB-DYYB
     Dosage: 5 MG/KG, 0, 2, 6, THEN EVERY 8 WEEKS
     Route: 042
     Dates: start: 20200513
  17. INFLECTRA [Suspect]
     Active Substance: INFLIXIMAB-DYYB
     Dosage: 5 MG/KG, 0, 2, 6, THEN EVERY 8 WEEKS
     Route: 042
     Dates: start: 20200708
  18. INFLECTRA [Suspect]
     Active Substance: INFLIXIMAB-DYYB
     Dosage: 10 MG/KG, Q 0 WEEK DOSE (RE-INDUCTION)
     Route: 042
     Dates: start: 20200811, end: 20200811
  19. INFLECTRA [Suspect]
     Active Substance: INFLIXIMAB-DYYB
     Dosage: 10 MG/KG, Q 2 WEEK DOSE (RE-INDUCTION)
     Route: 042
     Dates: start: 20200825, end: 20200825
  20. INFLECTRA [Suspect]
     Active Substance: INFLIXIMAB-DYYB
     Dosage: 10 MG/KG, Q 6 WEEK DOSE (RE-INDUCTION)
     Route: 042
     Dates: start: 20200930, end: 20200930
  21. INFLECTRA [Suspect]
     Active Substance: INFLIXIMAB-DYYB
     Dosage: 10 MG/KG, (0, 2, 6 WEEKS (RE-INDUCTION), THEN EVERY 8 WEEKS)
     Route: 042
     Dates: start: 20201125
  22. INFLECTRA [Suspect]
     Active Substance: INFLIXIMAB-DYYB
     Dosage: 10 MG/KG, EVERY 8 WEEK
     Route: 042
     Dates: start: 20201125, end: 20210317
  23. INFLECTRA [Suspect]
     Active Substance: INFLIXIMAB-DYYB
     Dosage: 10 MG/KG, (0, 2, 6 WEEKS (RE-INDUCTION), THEN EVERY 8 WEEKS)
     Route: 042
     Dates: start: 20210120
  24. INFLECTRA [Suspect]
     Active Substance: INFLIXIMAB-DYYB
     Dosage: 10 MG/KG, (0, 2, 6 WEEKS (RE-INDUCTION), THEN EVERY 8 WEEKS)
     Route: 042
     Dates: start: 20210317
  25. INFLECTRA [Suspect]
     Active Substance: INFLIXIMAB-DYYB
     Dosage: 10 MG/KG, ROUNDED TO NEAREST VIAL,/EVERY 6 WEEKS
     Route: 042
     Dates: start: 20210428
  26. INFLECTRA [Suspect]
     Active Substance: INFLIXIMAB-DYYB
     Dosage: 10 MG/KG, ROUNDED TO NEAREST VIAL,EVERY /6 WEEKS
     Route: 042
     Dates: start: 20210428, end: 20210907
  27. INFLECTRA [Suspect]
     Active Substance: INFLIXIMAB-DYYB
     Dosage: 10 MG/KG EVERY 6 WEEK (ROUNDED TO NEAREST VIAL)
     Route: 041
     Dates: start: 20210614
  28. INFLECTRA [Suspect]
     Active Substance: INFLIXIMAB-DYYB
     Dosage: 10 MG/KG EVERY 6 WEEK (ROUNDED TO NEAREST VIAL)
     Route: 041
     Dates: start: 20210907
  29. INFLECTRA [Suspect]
     Active Substance: INFLIXIMAB-DYYB
     Dosage: 10 MG/KG EVERY 6 WEEK (ROUNDED TO NEAREST VIAL)
     Route: 041
     Dates: start: 20210726
  30. INFLECTRA [Suspect]
     Active Substance: INFLIXIMAB-DYYB
     Dosage: 7.5 MG/KG ROUNDED TO NEAREST VIAL (EVERY 6 WEEK)
     Route: 041
     Dates: start: 20211019, end: 20211019
  31. INFLECTRA [Suspect]
     Active Substance: INFLIXIMAB-DYYB
     Dosage: 7.5 MG/KG,  (EVERY 6 WEEK)
     Route: 041
     Dates: start: 20211130
  32. INFLECTRA [Suspect]
     Active Substance: INFLIXIMAB-DYYB
     Dosage: 383 MG, (SUPPOSED TO RECEIVE 7.5 MG/KG) EVERY 6 WEEKS
     Route: 041
     Dates: start: 20220111
  33. INFLECTRA [Suspect]
     Active Substance: INFLIXIMAB-DYYB
     Dosage: 383 MG, (SUPPOSED TO RECEIVE 7.5 MG/KG) EVERY 6 WEEKS
     Route: 041
     Dates: start: 20220228
  34. INFLECTRA [Suspect]
     Active Substance: INFLIXIMAB-DYYB
     Dosage: 383 MG, (SUPPOSED TO RECEIVE 7.5 MG/KG) EVERY 6 WEEKS
     Route: 042
     Dates: start: 20220411
  35. INFLECTRA [Suspect]
     Active Substance: INFLIXIMAB-DYYB
     Dosage: 383 MG, (SUPPOSED TO RECEIVE 7.5 MG/KG) EVERY 6 WEEKS
     Route: 042
     Dates: start: 20220524
  36. INFLECTRA [Suspect]
     Active Substance: INFLIXIMAB-DYYB
     Dosage: 383 MG, (SUPPOSED TO RECEIVE 7.5 MG/KG) EVERY 6 WEEKS
     Route: 042
     Dates: start: 20220706
  37. INFLECTRA [Suspect]
     Active Substance: INFLIXIMAB-DYYB
     Dosage: 7.5 MG/KG, EVERY 6 WEEKS, (7.5 MG/KG ROUNDED TO NEAREST VIAL )
     Route: 042
     Dates: start: 20220815
  38. INFLECTRA [Suspect]
     Active Substance: INFLIXIMAB-DYYB
     Dosage: 7.5 MG/KG, EVERY 6 WEEKS, (7.5 MG/KG ROUNDED TO NEAREST VIAL )
     Route: 042
     Dates: start: 20220927
  39. INFLECTRA [Suspect]
     Active Substance: INFLIXIMAB-DYYB
     Dosage: 7.5 MG/KG, EVERY 6 WEEKS, (7.5 MG/KG ROUNDED TO NEAREST VIAL )
     Route: 042
     Dates: start: 20221107
  40. INFLECTRA [Suspect]
     Active Substance: INFLIXIMAB-DYYB
     Dosage: 383 MG, (SUPPOSED TO RECEIVE 7.5 MG/KG) EVERY 6 WEEKS
     Route: 042
     Dates: start: 20221220
  41. INFLECTRA [Suspect]
     Active Substance: INFLIXIMAB-DYYB
     Dosage: 383 MG, (SUPPOSED TO RECEIVE 7.5 MG/KG) EVERY 6 WEEKS
     Route: 042
     Dates: start: 20221220
  42. INFLECTRA [Suspect]
     Active Substance: INFLIXIMAB-DYYB
     Dosage: 7.5 MG/KG, EVERY 6 WEEKS
     Route: 042
     Dates: start: 20230131
  43. ATIVAN [Concomitant]
     Active Substance: LORAZEPAM
     Dosage: 1 MG, HS (AT BEDTIME)
  44. ATIVAN [Concomitant]
     Active Substance: LORAZEPAM
     Dosage: 1 MG, 1X/DAY
     Route: 065
  45. DEXILANT [Concomitant]
     Active Substance: DEXLANSOPRAZOLE
     Dosage: 30 MG, 1X/DAY
  46. DEXILANT [Concomitant]
     Active Substance: DEXLANSOPRAZOLE
     Dosage: 30 MG, 1X/DAY
     Route: 065
  47. CEFIXIME [Concomitant]
     Active Substance: CEFIXIME
     Dosage: UNK, BEFORE SLEEP (HS)
  48. CEFIXIME [Concomitant]
     Active Substance: CEFIXIME
     Dosage: 1 DF, 1X/DAY (UNKNOWN DOSE)
     Route: 065
  49. IRON [Concomitant]
     Active Substance: IRON
     Dosage: 300 MG, 2X/DAY
  50. IRON [Concomitant]
     Active Substance: IRON
     Dosage: 300 MG, 2X/DAY
     Route: 065
  51. JAMP CALCIUM [Concomitant]
     Dosage: 500 MG, 2X/DAY
  52. JAMP CALCIUM [Concomitant]
     Dosage: 500 MG, ALTERNATE DAY
     Route: 065
  53. JAMP CALCIUM [Concomitant]
     Dosage: 500 MG, 2X/DAY
     Route: 065
  54. JAMP CALCIUM [Concomitant]
     Dosage: 500 MG, EVERY 2 DAYS
     Route: 065
  55. CHOLECALCIFEROL [Concomitant]
     Active Substance: CHOLECALCIFEROL
     Dosage: 10000 IU, 1X/DAY
     Route: 065
  56. MORPHINE [Concomitant]
     Active Substance: MORPHINE
     Dosage: 1 DF STATUS: DISCONTINUED
  57. PROLIA [Concomitant]
     Active Substance: DENOSUMAB
     Indication: Osteoporosis
     Dosage: 1 DF 2X/ YEAR
  58. URSODIOL [Concomitant]
     Active Substance: URSODIOL
     Dosage: 250 MG, 1X/DAY
  59. URSODIOL [Concomitant]
     Active Substance: URSODIOL
     Dosage: 250 MG, 1X/DAY
     Route: 065
  60. VITAMIN E [Concomitant]
     Active Substance: .ALPHA.-TOCOPHEROL
     Dosage: 400 IU, 1X/DAY
  61. VITAMIN E [Concomitant]
     Active Substance: .ALPHA.-TOCOPHEROL
     Dosage: 1 DF, 1X/DAY, 400UI
     Route: 065
  62. RETINOL [Concomitant]
     Active Substance: RETINOL
     Dosage: 400 IU, 1X/DAY
  63. RETINOL [Concomitant]
     Active Substance: RETINOL
     Dosage: 10000 IU, 1X/DAY
  64. RETINOL [Concomitant]
     Active Substance: RETINOL
     Dosage: 400 IU, 1X/DAY
     Route: 065

REACTIONS (19)
  - Death [Fatal]
  - Dehydration [Recovered/Resolved]
  - Device related infection [Recovered/Resolved]
  - Therapeutic product effect incomplete [Unknown]
  - Drug level below therapeutic [Recovering/Resolving]
  - Confusional state [Unknown]
  - Abdominal distension [Not Recovered/Not Resolved]
  - Herpes zoster [Recovered/Resolved]
  - Arthralgia [Not Recovered/Not Resolved]
  - Condition aggravated [Not Recovered/Not Resolved]
  - COVID-19 [Recovered/Resolved]
  - Feeding disorder [Not Recovered/Not Resolved]
  - Fatigue [Not Recovered/Not Resolved]
  - Off label use [Unknown]
  - Off label use [Unknown]
  - Incorrect dose administered [Unknown]
  - Off label use [Unknown]
  - Intentional product use issue [Unknown]
  - Inappropriate schedule of product administration [Unknown]

NARRATIVE: CASE EVENT DATE: 20200115
